FAERS Safety Report 10077346 (Version 3)
Quarter: 2014Q2

REPORT INFORMATION
  Report Type: Spontaneous
  Country: US (occurrence: US)
  Receive Date: 20140414
  Receipt Date: 20140630
  Transmission Date: 20141212
  Serious: Yes (Other)
  Sender: FDA-Public Use
  Company Number: US-TEVA-474704USA

PATIENT
  Age: 70 Year
  Sex: Female

DRUGS (6)
  1. FENTORA [Suspect]
     Indication: ARTHRALGIA
     Route: 002
  2. FENTORA [Suspect]
     Indication: OSTEOMYELITIS
  3. ACTIQ [Suspect]
     Indication: ARTHRALGIA
  4. ACTIQ [Suspect]
     Indication: OSTEOMYELITIS
  5. SUBSYS [Suspect]
     Indication: ARTHRALGIA
  6. SUBSYS [Suspect]
     Indication: OSTEOMYELITIS

REACTIONS (2)
  - Suicidal ideation [Recovered/Resolved with Sequelae]
  - Off label use [Unknown]
